FAERS Safety Report 4382601-2 (Version None)
Quarter: 2004Q2

REPORT INFORMATION
  Report Type: 
  Country: None (occurrence: None)
  Receive Date: 20040617
  Receipt Date: 20040607
  Transmission Date: 20050107
  Serious: Yes (Disabling)
  Sender: FDA-Public Use
  Company Number: 2004217442DK

PATIENT
  Age: 76 Year
  Sex: Female
  Weight: 90 kg

DRUGS (1)
  1. DETRUSITOL [Suspect]
     Indication: BLADDER SPASM
     Dosage: 2.8 MG, QD, ORAL
     Route: 048
     Dates: start: 20040329, end: 20040521

REACTIONS (2)
  - ANGLE CLOSURE GLAUCOMA [None]
  - HEADACHE [None]
